FAERS Safety Report 12797249 (Version 2)
Quarter: 2016Q3

REPORT INFORMATION
  Report Type: Spontaneous
  Country: US (occurrence: US)
  Receive Date: 20160930
  Receipt Date: 20160930
  Transmission Date: 20161109
  Serious: No
  Sender: FDA-Public Use
  Company Number: US-PFIZER INC-2016456918

PATIENT
  Age: 68 Year
  Sex: Female
  Weight: 73.94 kg

DRUGS (1)
  1. LATANOPROST. [Suspect]
     Active Substance: LATANOPROST
     Indication: GLAUCOMA
     Dosage: UNK

REACTIONS (2)
  - Product substitution issue [Not Recovered/Not Resolved]
  - Eye irritation [Not Recovered/Not Resolved]
